FAERS Safety Report 9173854 (Version 3)
Quarter: 2016Q1

REPORT INFORMATION
  Report Type: Spontaneous
  Country: IT (occurrence: IT)
  Receive Date: 20130320
  Receipt Date: 20160205
  Transmission Date: 20160526
  Serious: Yes (Hospitalization, Other)
  Sender: FDA-Public Use
  Company Number: IT-BRISTOL-MYERS SQUIBB COMPANY-17469057

PATIENT
  Age: 77 Year
  Sex: Female

DRUGS (7)
  1. BRUFEN [Suspect]
     Active Substance: IBUPROFEN
     Indication: OSTEOARTHRITIS
     Dosage: TAB
     Route: 048
     Dates: start: 20110101, end: 20130221
  2. LASITONE [Concomitant]
     Active Substance: FUROSEMIDE\SPIRONOLACTONE
     Indication: HYPERTENSION
     Dosage: 1DF:25+37 MG TABLETS
     Route: 048
     Dates: start: 20130221
  3. CORDARONE [Concomitant]
     Active Substance: AMIODARONE HYDROCHLORIDE
     Indication: ATRIAL FIBRILLATION
     Dosage: TAB
     Route: 048
     Dates: start: 20130221
  4. COUMADIN [Suspect]
     Active Substance: WARFARIN SODIUM
     Indication: MITRAL VALVE REPLACEMENT
     Dosage: INTERR ON 21FEB2013
     Route: 048
     Dates: start: 19920101
  5. SIMVASTATIN. [Concomitant]
     Active Substance: SIMVASTATIN
     Indication: DYSLIPIDAEMIA
     Dosage: UNK
     Route: 048
  6. CONGESCOR [Concomitant]
     Active Substance: BISOPROLOL
     Indication: HYPERTENSION
     Dosage: TAB
     Route: 048
     Dates: start: 20130221
  7. BIFRIL [Concomitant]
     Active Substance: ZOFENOPRIL
     Indication: HYPERTENSION
     Dosage: 1DF:1 UNIT
     Route: 048
     Dates: start: 20130221

REACTIONS (7)
  - Melaena [Recovering/Resolving]
  - Syncope [Recovering/Resolving]
  - Osteoarthritis [Unknown]
  - Vasculitis [Recovering/Resolving]
  - Anaemia [Recovering/Resolving]
  - Thrombocytopenia [Recovering/Resolving]
  - Off label use [Unknown]

NARRATIVE: CASE EVENT DATE: 20130214
